FAERS Safety Report 25163985 (Version 2)
Quarter: 2025Q2

REPORT INFORMATION
  Report Type: Spontaneous
  Country: GB (occurrence: GB)
  Receive Date: 20250405
  Receipt Date: 20250501
  Transmission Date: 20250717
  Serious: Yes (Hospitalization, Other)
  Sender: AUROBINDO
  Company Number: GB-BRISTOL-MYERS SQUIBB COMPANY-2025-042726

PATIENT
  Age: 62 Year
  Sex: Male

DRUGS (8)
  1. APIXABAN [Suspect]
     Active Substance: APIXABAN
     Indication: Product used for unknown indication
     Route: 065
  2. DOXYCYCLINE [Concomitant]
     Active Substance: DOXYCYCLINE
     Indication: Product used for unknown indication
     Route: 065
  3. AVELUMAB [Concomitant]
     Active Substance: AVELUMAB
     Indication: Metastatic lymphoma
     Route: 065
     Dates: start: 20240125
  4. AVELUMAB [Concomitant]
     Active Substance: AVELUMAB
     Indication: Bladder cancer stage IV
  5. CISPLATIN [Concomitant]
     Active Substance: CISPLATIN
     Indication: Metastatic lymphoma
     Route: 065
     Dates: start: 20230720, end: 20231130
  6. CISPLATIN [Concomitant]
     Active Substance: CISPLATIN
     Indication: Bladder cancer stage IV
  7. GEMCITABINE [Concomitant]
     Active Substance: GEMCITABINE
     Indication: Metastatic lymphoma
     Route: 065
     Dates: start: 20230720, end: 20231207
  8. GEMCITABINE [Concomitant]
     Active Substance: GEMCITABINE
     Indication: Bladder cancer stage IV

REACTIONS (5)
  - Anaemia [Unknown]
  - Haematuria [Recovered/Resolved]
  - Transfusion-related circulatory overload [Unknown]
  - Crepitations [Unknown]
  - Oedema peripheral [Unknown]

NARRATIVE: CASE EVENT DATE: 20250211
